FAERS Safety Report 20479651 (Version 7)
Quarter: 2022Q3

REPORT INFORMATION
  Report Type: Report from Study
  Country: BR (occurrence: BR)
  Receive Date: 20220216
  Receipt Date: 20220810
  Transmission Date: 20221027
  Serious: Yes (Hospitalization, Other)
  Sender: FDA-Public Use
  Company Number: BR-ABBVIE-22K-020-4279647-00

PATIENT
  Age: 64 Year
  Sex: Female
  Weight: 80 kg

DRUGS (5)
  1. RINVOQ [Suspect]
     Active Substance: UPADACITINIB
     Indication: Rheumatoid arthritis
     Route: 048
     Dates: start: 20210723
  2. FLUOXETINE [Concomitant]
     Active Substance: FLUOXETINE HYDROCHLORIDE
     Indication: Depression
  3. SIMVASTATIN [Concomitant]
     Active Substance: SIMVASTATIN
     Indication: Depression
  4. ALENIA [Concomitant]
     Indication: Bronchitis
  5. FENOTEROL HYDROBROMIDE [Concomitant]
     Active Substance: FENOTEROL HYDROBROMIDE
     Indication: Bronchitis

REACTIONS (22)
  - H3N2 influenza [Unknown]
  - Cardio-respiratory arrest [Recovered/Resolved]
  - Oxygen saturation decreased [Unknown]
  - Infarction [Unknown]
  - COVID-19 [Unknown]
  - Aphonia [Recovered/Resolved]
  - Thrombocytopenia [Recovered/Resolved]
  - Acinetobacter infection [Recovering/Resolving]
  - Incorrect route of product administration [Unknown]
  - Diabetes mellitus [Unknown]
  - Weight decreased [Unknown]
  - Confusional state [Unknown]
  - Gait disturbance [Unknown]
  - Bradyphrenia [Unknown]
  - Memory impairment [Unknown]
  - Parosmia [Recovering/Resolving]
  - Urinary tract infection [Recovered/Resolved]
  - Hypoaesthesia [Recovering/Resolving]
  - Irritability [Not Recovered/Not Resolved]
  - Pain [Unknown]
  - Anaemia [Recovered/Resolved]
  - Bronchitis [Recovering/Resolving]

NARRATIVE: CASE EVENT DATE: 20211201
